FAERS Safety Report 14881138 (Version 2)
Quarter: 2018Q3

REPORT INFORMATION
  Report Type: Report from Study
  Country: AU (occurrence: AU)
  Receive Date: 20180511
  Receipt Date: 20180904
  Transmission Date: 20181010
  Serious: Yes (Hospitalization, Other)
  Sender: FDA-Public Use
  Company Number: AU-MYLANLABS-2018M1031883

PATIENT
  Age: 47 Year
  Sex: Male

DRUGS (9)
  1. CLOZARIL [Suspect]
     Active Substance: CLOZAPINE
     Dosage: 200 MG, AM
     Dates: start: 20180723
  2. CLOZARIL [Suspect]
     Active Substance: CLOZAPINE
     Dosage: 200 MG, AM
     Dates: start: 20180801
  3. CLOZARIL [Suspect]
     Active Substance: CLOZAPINE
     Dosage: 200 MG, AM
     Dates: start: 20180807
  4. CLOZARIL [Suspect]
     Active Substance: CLOZAPINE
     Dosage: 625 MG, PM
     Dates: start: 20180807
  5. CLOZARIL [Suspect]
     Active Substance: CLOZAPINE
     Indication: SCHIZOPHRENIA
     Dosage: 825 MG, UNK
     Route: 048
     Dates: start: 20040713
  6. CLOZARIL [Suspect]
     Active Substance: CLOZAPINE
     Dosage: 200 MG, AM
     Dates: start: 20180814
  7. CLOZARIL [Suspect]
     Active Substance: CLOZAPINE
     Dosage: 625 MG, PM
     Dates: start: 20180814
  8. CLOZARIL [Suspect]
     Active Substance: CLOZAPINE
     Dosage: 650 MG, PM
     Dates: start: 20180801
  9. CLOZARIL [Suspect]
     Active Substance: CLOZAPINE
     Dosage: 625 MG, PM
     Dates: start: 20180723

REACTIONS (4)
  - Antipsychotic drug level above therapeutic [Not Recovered/Not Resolved]
  - Thrombocytopenia [Recovered/Resolved]
  - Lymphocyte count decreased [Not Recovered/Not Resolved]
  - Hospitalisation [Unknown]

NARRATIVE: CASE EVENT DATE: 201803
